FAERS Safety Report 4724572-2 (Version None)
Quarter: 2005Q3

REPORT INFORMATION
  Report Type: 
  Country: None (occurrence: None)
  Receive Date: 20050721
  Receipt Date: 20050705
  Transmission Date: 20060218
  Serious: Yes (Hospitalization)
  Sender: FDA-Public Use
  Company Number: 215512

PATIENT
  Age: 54 Year
  Sex: Male

DRUGS (3)
  1. BEVACIZUMAB CODE BROKEN (BEVACIZUMAB) PWDR +SOLVENT, INFUSION SOLN, 10 [Suspect]
     Indication: METASTATIC RENAL CELL CARCINOMA
     Dosage: 10 MG/KGQ2W INTRAVENOUS
     Route: 042
     Dates: start: 20041010
  2. INTERFERON ALFA-2A (INTERFERON ALFA-2A) [Suspect]
     Indication: METASTATIC RENAL CELL CARCINOMA
     Dosage: 9 MIU 3/WEEK SUBCUTANEOUS
     Route: 058
     Dates: start: 20041011
  3. AMLODIPINE BESILATE (AMLODIPINE BESYALTE) [Concomitant]

REACTIONS (1)
  - HYDRONEPHROSIS [None]
